FAERS Safety Report 8288276-4 (Version None)
Quarter: 2012Q2

REPORT INFORMATION
  Report Type: 
  Country: None (occurrence: None)
  Receive Date: 20120416
  Receipt Date: 20120407
  Transmission Date: 20120825
  Serious: Yes (Hospitalization)
  Sender: FDA-Public Use
  Company Number: PHHY2012FR013774

PATIENT
  Age: 18 Year
  Sex: Male
  Weight: 75 kg

DRUGS (6)
  1. CLOZAPINE [Suspect]
     Indication: MENTAL DISORDER
     Dosage: 200 MG, UNK
     Dates: start: 20100906, end: 20110101
  2. IMPORTAL [Concomitant]
     Indication: CONSTIPATION
     Dosage: UNK UKN, UNK
  3. CLOZAPINE [Suspect]
     Dosage: 100 MG/ DAILY
  4. CLOZAPINE [Suspect]
     Dosage: 25 MG/ TWICE DAILY
     Dates: start: 20120327
  5. CLOZAPINE [Suspect]
     Dosage: 150 MG,(50 MG MORNING AND 100 MG EVENING)
     Dates: end: 20120211
  6. LAMICTAL [Concomitant]
     Dosage: 2 MG, QD

REACTIONS (5)
  - PROTHROMBIN TIME RATIO ABNORMAL [None]
  - WHITE BLOOD CELL COUNT INCREASED [None]
  - ANTIPSYCHOTIC DRUG LEVEL BELOW THERAPEUTIC [None]
  - THERAPEUTIC RESPONSE UNEXPECTED [None]
  - CONVULSION [None]
